FAERS Safety Report 8018563-6 (Version None)
Quarter: 2012Q2

REPORT INFORMATION
  Report Type: 
  Country: None (occurrence: None)
  Receive Date: 20120103
  Receipt Date: 20111219
  Transmission Date: 20120825
  Serious: Yes (Death, Other)
  Sender: FDA-Public Use
  Company Number: US-PFIZER INC-2011311892

PATIENT
  Age: 25 Year
  Sex: Female

DRUGS (3)
  1. BUPRENORPHINE HCL AND NALOXONE HCL [Suspect]
     Route: 060
  2. HEROIN [Suspect]
  3. OXYCODONE HCL [Suspect]

REACTIONS (3)
  - DEATH [None]
  - RESPIRATORY ARREST [None]
  - CARDIAC ARREST [None]
